FAERS Safety Report 10760537 (Version 3)
Quarter: 2015Q1

REPORT INFORMATION
  Report Type: Report from Study
  Country: IT (occurrence: IT)
  Receive Date: 20150204
  Receipt Date: 20150219
  Transmission Date: 20150721
  Serious: Yes (Death, Hospitalization)
  Sender: FDA-Public Use
  Company Number: IT-ROCHE-1529209

PATIENT
  Age: 54 Year
  Sex: Male

DRUGS (13)
  1. CLAXON [Suspect]
     Active Substance: CEFTRIAXONE SODIUM
     Indication: HYPERTHERMIA
     Route: 030
     Dates: start: 20150105, end: 20150109
  2. FUROSEMIDE. [Concomitant]
     Active Substance: FUROSEMIDE
     Route: 065
     Dates: start: 20141030
  3. PANTOPRAZOLE [Concomitant]
     Active Substance: PANTOPRAZOLE SODIUM
     Route: 065
     Dates: start: 20130601
  4. URSODEOXYCHOLIC ACID [Concomitant]
     Active Substance: URSODIOL
     Route: 065
     Dates: start: 20130601
  5. RIBAVIRIN. [Suspect]
     Active Substance: RIBAVIRIN
     Route: 048
     Dates: start: 20150121, end: 20150131
  6. SOFOSBUVIR [Suspect]
     Active Substance: SOFOSBUVIR
     Indication: HEPATITIS C
     Route: 048
     Dates: start: 20140904, end: 20150115
  7. TACROLIMUS. [Concomitant]
     Active Substance: TACROLIMUS
     Route: 065
     Dates: start: 20130601
  8. RIBAVIRIN. [Suspect]
     Active Substance: RIBAVIRIN
     Indication: HEPATITIS C
     Route: 048
     Dates: start: 20140911, end: 20150115
  9. SOFOSBUVIR [Suspect]
     Active Substance: SOFOSBUVIR
     Route: 048
     Dates: start: 20150121, end: 20150131
  10. PROPANOLOL [Concomitant]
     Active Substance: PROPRANOLOL HYDROCHLORIDE
     Route: 065
     Dates: start: 20141224, end: 20150114
  11. CANRENOATE POTASSIUM [Concomitant]
     Active Substance: CANRENOATE POTASSIUM
     Route: 065
     Dates: start: 20141030
  12. INSULIN [Concomitant]
     Active Substance: INSULIN NOS
     Route: 065
     Dates: start: 20130601
  13. CLONIDINE. [Concomitant]
     Active Substance: CLONIDINE
     Route: 065
     Dates: start: 20130601

REACTIONS (8)
  - Urine analysis abnormal [Unknown]
  - Cholelithiasis [Unknown]
  - Biliary sepsis [Fatal]
  - Septic shock [Fatal]
  - Ascites [Unknown]
  - Oedema peripheral [Unknown]
  - Pyrexia [Unknown]
  - Biliary dilatation [Unknown]

NARRATIVE: CASE EVENT DATE: 201501
